FAERS Safety Report 17835955 (Version 2)
Quarter: 2020Q2

REPORT INFORMATION
  Report Type: Spontaneous
  Country: US (occurrence: US)
  Receive Date: 20200528
  Receipt Date: 20200620
  Transmission Date: 20200714
  Serious: No
  Sender: FDA-Public Use
  Company Number: US-ASTRAZENECA-2020SE68204

PATIENT
  Age: 54 Year
  Sex: Female
  Weight: 95.7 kg

DRUGS (1)
  1. BYDUREON BCISE [Suspect]
     Active Substance: EXENATIDE
     Indication: TYPE 2 DIABETES MELLITUS
     Route: 058
     Dates: start: 2019

REACTIONS (8)
  - Injection site irritation [Unknown]
  - Incorrect dose administered by product [Unknown]
  - Device leakage [Unknown]
  - Injection site mass [Recovered/Resolved]
  - Injection site swelling [Unknown]
  - Sensitive skin [Unknown]
  - Injection site pruritus [Unknown]
  - Wrong technique in product usage process [Unknown]

NARRATIVE: CASE EVENT DATE: 2019
